FAERS Safety Report 6064602-1 (Version None)
Quarter: 2009Q1

REPORT INFORMATION
  Report Type: 
  Country: None (occurrence: None)
  Receive Date: 20090204
  Receipt Date: 20090202
  Transmission Date: 20090719
  Serious: Yes (Other)
  Sender: FDA-Public Use
  Company Number: B0556906A

PATIENT
  Age: 10 Year
  Sex: Male

DRUGS (4)
  1. RELENZA [Suspect]
     Route: 055
     Dates: start: 20090124
  2. CALONAL [Concomitant]
     Route: 065
  3. SAWACILLIN [Concomitant]
     Route: 048
  4. BIOFERMIN [Concomitant]
     Route: 048

REACTIONS (8)
  - ABNORMAL BEHAVIOUR [None]
  - BODY TEMPERATURE DECREASED [None]
  - CONVULSION [None]
  - DIARRHOEA [None]
  - DYSKINESIA [None]
  - EPISTAXIS [None]
  - TINNITUS [None]
  - VOMITING [None]
